FAERS Safety Report 7978313-6 (Version None)
Quarter: 2011Q4

REPORT INFORMATION
  Report Type: 
  Country: None (occurrence: None)
  Receive Date: 20111214
  Receipt Date: 20111206
  Transmission Date: 20120403
  Serious: Yes (Other)
  Sender: FDA-Public Use
  Company Number: RU-BAYER-2011-116978

PATIENT
  Age: 35 Year
  Sex: Female

DRUGS (1)
  1. DROSPIRENONE AND ETHINYL ESTRADIOL [Suspect]
     Dosage: UNK
     Dates: start: 20040901, end: 20041001

REACTIONS (4)
  - ABORTION THREATENED [None]
  - PREGNANCY ON ORAL CONTRACEPTIVE [None]
  - DEGENERATION OF UTERINE LEIOMYOMA [None]
  - PLACENTAL INSUFFICIENCY [None]
